FAERS Safety Report 14687903 (Version 1)
Quarter: 2018Q1

REPORT INFORMATION
  Report Type: Spontaneous
  Country: US (occurrence: US)
  Receive Date: 20180328
  Receipt Date: 20180328
  Transmission Date: 20180509
  Serious: No
  Sender: FDA-Public Use
  Company Number: US-ASTRAZENECA-2018SE35720

PATIENT
  Sex: Male
  Weight: 81.6 kg

DRUGS (9)
  1. MOVANTIK [Suspect]
     Active Substance: NALOXEGOL OXALATE
     Indication: IRRITABLE BOWEL SYNDROME
     Route: 048
     Dates: start: 201709
  2. MOVANTIK [Suspect]
     Active Substance: NALOXEGOL OXALATE
     Indication: IRRITABLE BOWEL SYNDROME
     Dosage: HALF TABLET
     Route: 048
  3. MOVANTIK [Suspect]
     Active Substance: NALOXEGOL OXALATE
     Indication: PAIN
     Dosage: HALF TABLET
     Route: 048
  4. MOVANTIK [Suspect]
     Active Substance: NALOXEGOL OXALATE
     Indication: CONSTIPATION
     Dosage: HALF TABLET
     Route: 048
  5. MOVANTIK [Suspect]
     Active Substance: NALOXEGOL OXALATE
     Indication: CONSTIPATION
     Route: 048
     Dates: start: 201709
  6. SIMVASTATIN. [Concomitant]
     Active Substance: SIMVASTATIN
     Indication: BLOOD CHOLESTEROL ABNORMAL
     Route: 048
  7. MOVANTIK [Suspect]
     Active Substance: NALOXEGOL OXALATE
     Indication: PAIN
     Route: 048
     Dates: start: 201709
  8. OXYCODONE [Concomitant]
     Active Substance: OXYCODONE
     Indication: PAIN
     Route: 048
  9. OXYCODONE [Concomitant]
     Active Substance: OXYCODONE
     Indication: PAIN
     Dosage: 10.0MG AS REQUIRED
     Route: 048

REACTIONS (19)
  - Fibromyalgia [Unknown]
  - Choking [Unknown]
  - Withdrawal syndrome [Unknown]
  - Eating disorder [Unknown]
  - Off label use [Unknown]
  - Nephrolithiasis [Unknown]
  - Pain [Unknown]
  - Pollakiuria [Unknown]
  - Abnormal faeces [Unknown]
  - Lyme disease [Unknown]
  - Gastrooesophageal reflux disease [Unknown]
  - Neuropathy peripheral [Unknown]
  - Flatulence [Recovered/Resolved]
  - Bowel movement irregularity [Unknown]
  - Intervertebral disc protrusion [Unknown]
  - Herpes zoster [Unknown]
  - Spinal column stenosis [Unknown]
  - Intentional product misuse [Unknown]
  - Product use in unapproved indication [Unknown]
